FAERS Safety Report 13803970 (Version 1)
Quarter: 2017Q3

REPORT INFORMATION
  Report Type: Report from Study
  Country: None (occurrence: CA)
  Receive Date: 20170728
  Receipt Date: 20170728
  Transmission Date: 20171127
  Serious: Yes (Other)
  Sender: FDA-Public Use
  Company Number: CA-ABBVIE-17K-028-2052926-00

PATIENT
  Sex: Female

DRUGS (1)
  1. HUMIRA [Suspect]
     Active Substance: ADALIMUMAB
     Indication: PSORIATIC ARTHROPATHY
     Route: 058
     Dates: start: 20170520

REACTIONS (2)
  - Hepatic enzyme increased [Not Recovered/Not Resolved]
  - Mammogram abnormal [Not Recovered/Not Resolved]

NARRATIVE: CASE EVENT DATE: 2017
